FAERS Safety Report 8129138-2 (Version None)
Quarter: 2012Q1

REPORT INFORMATION
  Report Type: 
  Country: None (occurrence: None)
  Receive Date: 20120210
  Receipt Date: 20111128
  Transmission Date: 20120608
  Serious: No
  Sender: FDA-Public Use
  Company Number: US-BRISTOL-MYERS SQUIBB COMPANY-16155673

PATIENT

DRUGS (1)
  1. ORENCIA [Suspect]
     Dosage: 72 VIALS LOT + EXP: 1F67196 MAY2014 58 VIALS, 1F67198 MAY2014 11 VIALS

REACTIONS (1)
  - CIRCUMSTANCE OR INFORMATION CAPABLE OF LEADING TO MEDICATION ERROR [None]
